FAERS Safety Report 10630496 (Version 1)
Quarter: 2014Q4

REPORT INFORMATION
  Report Type: Spontaneous
  Country: US (occurrence: None)
  Receive Date: 20141203
  Receipt Date: 20141203
  Transmission Date: 20150529
  Serious: Yes (Other)
  Sender: FDA-Public Use
  Company Number: None

PATIENT
  Age: 66 Year
  Sex: Female
  Weight: 71.22 kg

DRUGS (4)
  1. MUPIROCIN. [Suspect]
     Active Substance: MUPIROCIN
     Indication: STAPHYLOCOCCAL INFECTION
     Dosage: 1 APPLIC  TWICE DAILY  PER NOSTRIL
  2. MUPIROCIN. [Suspect]
     Active Substance: MUPIROCIN
     Indication: RHINITIS
     Dosage: 1 APPLIC  TWICE DAILY  PER NOSTRIL
  3. MUPIROCIN. [Suspect]
     Active Substance: MUPIROCIN
     Indication: PREOPERATIVE CARE
     Dosage: 1 APPLIC  TWICE DAILY  PER NOSTRIL
  4. MUPIROCIN. [Suspect]
     Active Substance: MUPIROCIN
     Indication: ANTIBIOTIC THERAPY
     Dosage: 1 APPLIC  TWICE DAILY  PER NOSTRIL

REACTIONS (2)
  - Incorrect route of drug administration [None]
  - Drug prescribing error [None]

NARRATIVE: CASE EVENT DATE: 20141120
